FAERS Safety Report 24007578 (Version 1)
Quarter: 2024Q2

REPORT INFORMATION
  Report Type: Spontaneous
  Country: PT (occurrence: PT)
  Receive Date: 20240625
  Receipt Date: 20240625
  Transmission Date: 20240716
  Serious: Yes (Other)
  Sender: FDA-Public Use
  Company Number: PT-HALEON-2182469

PATIENT

DRUGS (1)
  1. VOLTAREN [Suspect]
     Active Substance: DICLOFENAC SODIUM
     Indication: Fibromyalgia

REACTIONS (3)
  - Vomiting [Unknown]
  - Product use in unapproved indication [Unknown]
  - Neuromyopathy [Unknown]
